FAERS Safety Report 9556217 (Version 1)
Quarter: 2013Q3

REPORT INFORMATION
  Report Type: Report from Study
  Country: CA (occurrence: CA)
  Receive Date: 20130926
  Receipt Date: 20130926
  Transmission Date: 20140515
  Serious: Yes (Other)
  Sender: FDA-Public Use
  Company Number: CA-JNJFOC-20130912305

PATIENT
  Age: 55 Year
  Sex: Female
  Weight: 127 kg

DRUGS (13)
  1. REMICADE [Suspect]
     Indication: CROHN^S DISEASE
     Route: 042
     Dates: start: 20130612
  2. SYNTHROID [Concomitant]
     Route: 065
  3. EFFEXOR [Concomitant]
     Route: 065
  4. SIMVASTATIN [Concomitant]
     Route: 065
  5. NOVORAPID [Concomitant]
     Route: 065
  6. LANTUS INSULIN [Concomitant]
     Route: 065
  7. METFORMIN [Concomitant]
     Route: 065
  8. IMURAN [Concomitant]
     Route: 065
  9. PREDNISONE [Concomitant]
     Route: 065
  10. DIPENTUM [Concomitant]
     Route: 065
  11. OLMETEC [Concomitant]
     Route: 065
  12. MORPHINE [Concomitant]
     Dosage: ^GD^ [SIC] , PRN
     Route: 065
  13. KEFLEX [Concomitant]
     Route: 065

REACTIONS (2)
  - Convulsion [Unknown]
  - Blood glucose decreased [Recovered/Resolved]
